FAERS Safety Report 4594164-7 (Version None)
Quarter: 2005Q1

REPORT INFORMATION
  Report Type: 
  Country: None (occurrence: None)
  Receive Date: 20050222
  Receipt Date: 20050207
  Transmission Date: 20050727
  Serious: Yes (Disabling)
  Sender: FDA-Public Use
  Company Number: 2004AP06386

PATIENT
  Age: 80 Year
  Sex: Male

DRUGS (4)
  1. CASODEX [Suspect]
     Indication: PROSTATE CANCER
     Dosage: 80 MG DAILY PO
     Route: 048
     Dates: start: 20040105, end: 20041220
  2. LEUPLIN [Suspect]
     Indication: PROSTATE CANCER
     Dosage: 11.25 MG Q3MO SQ
     Route: 058
     Dates: start: 20040228, end: 20040828
  3. CIBENOL [Concomitant]
  4. CERNILTON [Concomitant]

REACTIONS (3)
  - RHABDOMYOLYSIS [None]
  - TRANSIENT ISCHAEMIC ATTACK [None]
  - VIRAL UPPER RESPIRATORY TRACT INFECTION [None]
